FAERS Safety Report 7841419-6 (Version None)
Quarter: 2011Q4

REPORT INFORMATION
  Report Type: 
  Country: None (occurrence: None)
  Receive Date: 20111025
  Receipt Date: 20111014
  Transmission Date: 20120403
  Serious: No
  Sender: FDA-Public Use
  Company Number: US-US-EMD SERONO, INC.-7000018

PATIENT
  Sex: Female

DRUGS (5)
  1. REBIF [Suspect]
     Indication: MULTIPLE SCLEROSIS
     Route: 058
     Dates: start: 20090305
  2. CELEXA [Concomitant]
  3. UNSPECIFIED MEDICATION [Concomitant]
  4. BACLOFEN [Concomitant]
  5. VITAMIN D [Concomitant]

REACTIONS (1)
  - INJECTION SITE HAEMATOMA [None]
